FAERS Safety Report 8890590 (Version 7)
Quarter: 2017Q4

REPORT INFORMATION
  Report Type: Report from Study
  Country: US (occurrence: US)
  Receive Date: 20121106
  Receipt Date: 20171024
  Transmission Date: 20180321
  Serious: Yes (Life-Threatening, Hospitalization)
  Sender: FDA-Public Use
  Company Number: US-009507513-1211USA000155

PATIENT
  Age: 6 Year
  Sex: Female
  Weight: 20.1 kg

DRUGS (9)
  1. DEXAMETHASONE. [Suspect]
     Active Substance: DEXAMETHASONE
     Dosage: 4 MG, QID
     Route: 048
  2. LACTULOSE. [Concomitant]
     Active Substance: LACTULOSE
  3. VORINOSTAT [Suspect]
     Active Substance: VORINOSTAT
     Indication: BRAIN STEM GLIOMA
     Dosage: 230 MG/M2/DOSE ON DAYS 1-5 WEEKLY (CYCLE 1)
     Route: 048
     Dates: start: 20121011
  4. VORINOSTAT [Suspect]
     Active Substance: VORINOSTAT
     Dosage: 230 MG/M2/DOSE QD (CYCLE 2)
     Route: 048
     Dates: start: 20121126
  5. DEXAMETHASONE. [Suspect]
     Active Substance: DEXAMETHASONE
     Dosage: 10 MG, UNK
     Route: 042
  6. VORINOSTAT [Suspect]
     Active Substance: VORINOSTAT
     Dosage: 230 MG/M2/DOSE QD (CYCLE 3)
     Route: 048
     Dates: start: 20121228
  7. BACTRIM [Suspect]
     Active Substance: SULFAMETHOXAZOLE\TRIMETHOPRIM
  8. ONDANSETRON [Concomitant]
     Active Substance: ONDANSETRON
  9. VORINOSTAT [Suspect]
     Active Substance: VORINOSTAT
     Dosage: 230 MG/M2/DOSE QD (CYCLE 3)
     Route: 048
     Dates: end: 20130129

REACTIONS (6)
  - Haemorrhage intracranial [Recovering/Resolving]
  - Fatigue [Recovered/Resolved]
  - Glucose tolerance impaired [Recovering/Resolving]
  - White blood cell count decreased [Not Recovered/Not Resolved]
  - Hyperglycaemia [Recovering/Resolving]
  - Pyrexia [Recovered/Resolved]

NARRATIVE: CASE EVENT DATE: 20121027
